FAERS Safety Report 7016375-3 (Version None)
Quarter: 2010Q3

REPORT INFORMATION
  Report Type: 
  Country: None (occurrence: None)
  Receive Date: 20100909
  Receipt Date: 20100407
  Transmission Date: 20110219
  Serious: No
  Sender: FDA-Public Use
  Company Number: 2010SP020649

PATIENT
  Age: 33 Year
  Sex: Female

DRUGS (3)
  1. SAPHRIS [Suspect]
     Indication: BIPOLAR DISORDER
     Dosage: 5 MG; SL
     Route: 060
     Dates: start: 20100128
  2. ATIVAN (CON.) [Concomitant]
  3. TRAZADONE (CON.) [Concomitant]

REACTIONS (2)
  - LIBIDO INCREASED [None]
  - ORGASM ABNORMAL [None]
